FAERS Safety Report 10235083 (Version 1)
Quarter: 2014Q2

REPORT INFORMATION
  Report Type: Spontaneous
  Country: US (occurrence: None)
  Receive Date: 20140611
  Receipt Date: 20140611
  Transmission Date: 20141212
  Serious: Yes (Life-Threatening)
  Sender: FDA-Public Use
  Company Number: 2014SA073013

PATIENT
  Sex: Female

DRUGS (1)
  1. ROLAIDS ULTRA STRENGTH- CHERRY [Suspect]
     Indication: PRODUCT USED FOR UNKNOWN INDICATION
     Dates: start: 20140525

REACTIONS (1)
  - Reaction to drug excipients [None]
